FAERS Safety Report 6961165-0 (Version None)
Quarter: 2010Q3

REPORT INFORMATION
  Report Type: 
  Country: None (occurrence: None)
  Receive Date: 20100901
  Receipt Date: 20100826
  Transmission Date: 20110219
  Serious: Yes (Other)
  Sender: FDA-Public Use
  Company Number: DE-BRISTOL-MYERS SQUIBB COMPANY-15258791

PATIENT
  Sex: Female
  Weight: 13 kg

DRUGS (1)
  1. ABILIFY [Suspect]
     Dosage: TAKEN 7 TABLET(MAX)
     Route: 048

REACTIONS (3)
  - ACCIDENTAL DRUG INTAKE BY CHILD [None]
  - NO ADVERSE EVENT [None]
  - OVERDOSE [None]
